FAERS Safety Report 4467236-5 (Version None)
Quarter: 2004Q4

REPORT INFORMATION
  Report Type: 
  Country: None (occurrence: None)
  Receive Date: 20041006
  Receipt Date: 20041001
  Transmission Date: 20050328
  Serious: Yes (Death)
  Sender: FDA-Public Use
  Company Number: US-MERCK-0410USA00286

PATIENT
  Age: 52 Year
  Sex: Male

DRUGS (6)
  1. [THERAPY UNSPECIFIED] [Concomitant]
     Route: 065
  2. ANTIMICROBIAL (UNSPECIFIED) [Concomitant]
     Route: 065
  3. PROSCAR [Concomitant]
     Route: 048
  4. HYDRODIURIL [Concomitant]
     Route: 065
  5. SPORANOX [Concomitant]
     Route: 065
  6. VIOXX [Suspect]
     Route: 048
     Dates: start: 20011001

REACTIONS (1)
  - MYOCARDIAL INFARCTION [None]
